FAERS Safety Report 23715872 (Version 1)
Quarter: 2024Q2

REPORT INFORMATION
  Report Type: Spontaneous
  Country: CN (occurrence: CN)
  Receive Date: 20240408
  Receipt Date: 20240408
  Transmission Date: 20240716
  Serious: Yes (Hospitalization, Other)
  Sender: FDA-Public Use
  Company Number: None

PATIENT
  Age: 65 Year
  Sex: Male
  Weight: 65 kg

DRUGS (1)
  1. IBUPROFEN [Suspect]
     Active Substance: IBUPROFEN
     Indication: Headache
     Dosage: 1 DOSAGE FORM, SUSTAINED-RELEASED CAPSULE (1 TOTAL)
     Route: 065
     Dates: start: 20210607, end: 20210607

REACTIONS (1)
  - Hepatic failure [Recovered/Resolved]

NARRATIVE: CASE EVENT DATE: 20210608
